FAERS Safety Report 9921775 (Version 1)
Quarter: 2014Q1

REPORT INFORMATION
  Report Type: Spontaneous
  Country: CA (occurrence: CA)
  Receive Date: 20140225
  Receipt Date: 20140225
  Transmission Date: 20141002
  Serious: Yes (Other)
  Sender: FDA-Public Use
  Company Number: CA-PFIZER INC-2014049370

PATIENT
  Age: 23 Year
  Sex: Female

DRUGS (2)
  1. ETHINYLESTRADIOL/LEVONORGESTREL [Suspect]
     Indication: CONTRACEPTION
  2. MARVELON [Suspect]
     Indication: CONTRACEPTION

REACTIONS (1)
  - Cervix haemorrhage uterine [Unknown]
